FAERS Safety Report 4344348-8 (Version None)
Quarter: 2004Q2

REPORT INFORMATION
  Report Type: 
  Country: None (occurrence: None)
  Receive Date: 20040419
  Receipt Date: 20040407
  Transmission Date: 20050107
  Serious: Yes (Hospitalization)
  Sender: FDA-Public Use
  Company Number: HQWYE790902FEB04

PATIENT
  Age: 66 Year
  Sex: Female

DRUGS (3)
  1. INDERAL LA [Suspect]
     Indication: ATRIAL FIBRILLATION
     Dosage: 120 MG 1X PER 1 DAY
     Route: 048
     Dates: end: 20020402
  2. BAYASPIRINA (ACETYLSALICYLIC ACID) [Concomitant]
  3. FLUITRAN (TRICHLORMETHIAXIDE) [Concomitant]

REACTIONS (2)
  - CARDIOMYOPATHY [None]
  - SINUS ARREST [None]
